FAERS Safety Report 6401650-3 (Version None)
Quarter: 2009Q4

REPORT INFORMATION
  Report Type: 
  Country: None (occurrence: None)
  Receive Date: 20091015
  Receipt Date: 20091005
  Transmission Date: 20100525
  Serious: Yes (Hospitalization)
  Sender: FDA-Public Use
  Company Number: JP-JNJFOC-20090905506

PATIENT
  Sex: Male
  Weight: 60 kg

DRUGS (6)
  1. REMICADE [Suspect]
     Route: 042
     Dates: end: 20090901
  2. REMICADE [Suspect]
     Indication: RHEUMATOID ARTHRITIS
     Dosage: TOTAL OF 20 (ALSO REPORTED AS 21 INFUSIONS)
     Route: 042
     Dates: end: 20090901
  3. RHEUMATREX [Concomitant]
     Indication: RHEUMATOID ARTHRITIS
     Route: 048
  4. AZULFIDINE [Concomitant]
     Route: 048
  5. PREDONINE [Concomitant]
  6. MUCOSTA [Concomitant]
     Route: 048

REACTIONS (1)
  - GASTRIC CANCER STAGE IV [None]
